FAERS Safety Report 5794531-X (Version None)
Quarter: 2008Q2

REPORT INFORMATION
  Report Type: 
  Country: None (occurrence: None)
  Receive Date: 20080625
  Receipt Date: 20080610
  Transmission Date: 20081010
  Serious: Yes (Hospitalization)
  Sender: FDA-Public Use
  Company Number: A-US2008-20937

PATIENT
  Age: 71 Year
  Sex: Male

DRUGS (3)
  1. VENTAVIS [Suspect]
     Indication: SYSTEMIC SCLEROSIS
     Dosage: 2.0NG/KG/MX8H QDX5, THEN QMO X22, INTRAVENOUS
     Route: 042
  2. ASPIRIN [Concomitant]
  3. CALCIUM CHANNEL BLOCKERS [Concomitant]

REACTIONS (1)
  - CEREBROVASCULAR ACCIDENT [None]
